FAERS Safety Report 9834613 (Version 1)
Quarter: 2014Q1

REPORT INFORMATION
  Report Type: Spontaneous
  Country: US (occurrence: US)
  Receive Date: 20140122
  Receipt Date: 20140122
  Transmission Date: 20141002
  Serious: No
  Sender: FDA-Public Use
  Company Number: US-UPSHER-SMITH LABORATORIES, INC.-13003095

PATIENT
  Age: 9 Year
  Sex: Female

DRUGS (3)
  1. BENZTROPINE MESYLATE [Suspect]
     Indication: PRODUCT USED FOR UNKNOWN INDICATION
     Dosage: 1 MG, QD
     Route: 048
     Dates: start: 201308
  2. ABILIFY [Concomitant]
     Dosage: UNK
  3. CONCERTA [Concomitant]
     Dosage: UNK

REACTIONS (2)
  - Hallucination, visual [Recovered/Resolved]
  - Psychomotor hyperactivity [Recovered/Resolved]
